FAERS Safety Report 24986641 (Version 1)
Quarter: 2025Q1

REPORT INFORMATION
  Report Type: Spontaneous
  Country: EG (occurrence: None)
  Receive Date: 20250217
  Receipt Date: 20250217
  Transmission Date: 20250409
  Serious: Yes (Death, Life-Threatening, Congenital Anomaly)
  Sender: FDA-CTU
  Company Number: None

PATIENT
  Age: 9 Week
  Sex: Female
  Weight: 2 kg

DRUGS (2)
  1. METHOTREXATE [Suspect]
     Active Substance: METHOTREXATE
     Indication: Abortion induced
     Route: 058
  2. METHOTREXATE [Concomitant]
     Active Substance: METHOTREXATE
     Dates: start: 20241031, end: 20241031

REACTIONS (8)
  - Maternal exposure during pregnancy [None]
  - Maternal drugs affecting foetus [None]
  - Heart disease congenital [None]
  - Pulmonary hypertension [None]
  - Anaemia [None]
  - Hypoxia [None]
  - Sepsis [None]
  - Pneumonia [None]

NARRATIVE: CASE EVENT DATE: 20250217
